FAERS Safety Report 20490756 (Version 2)
Quarter: 2022Q1

REPORT INFORMATION
  Report Type: Report from Study
  Country: TW (occurrence: TW)
  Receive Date: 20220218
  Receipt Date: 20220309
  Transmission Date: 20220423
  Serious: Yes (Other)
  Sender: FDA-Public Use
  Company Number: TW-AstraZeneca-2022A063197

PATIENT
  Age: 49 Year
  Sex: Female
  Weight: 41 kg

DRUGS (18)
  1. TRASTUZUMAB DERUXTECAN [Suspect]
     Active Substance: TRASTUZUMAB DERUXTECAN
     Indication: Breast cancer metastatic
     Dosage: 220 MG
     Route: 042
     Dates: start: 20210514, end: 20210514
  2. TRASTUZUMAB DERUXTECAN [Suspect]
     Active Substance: TRASTUZUMAB DERUXTECAN
     Dosage: 220 MG
     Route: 042
     Dates: start: 20210611, end: 20210611
  3. TRASTUZUMAB DERUXTECAN [Suspect]
     Active Substance: TRASTUZUMAB DERUXTECAN
     Dosage: 220 MG
     Route: 042
     Dates: start: 20210702, end: 20210702
  4. TRASTUZUMAB DERUXTECAN [Suspect]
     Active Substance: TRASTUZUMAB DERUXTECAN
     Dosage: 220 MG
     Route: 042
     Dates: start: 20210722, end: 20210722
  5. TRASTUZUMAB DERUXTECAN [Suspect]
     Active Substance: TRASTUZUMAB DERUXTECAN
     Dosage: 220 MG
     Route: 042
     Dates: start: 20210813, end: 20210813
  6. TRASTUZUMAB DERUXTECAN [Suspect]
     Active Substance: TRASTUZUMAB DERUXTECAN
     Dosage: 220 MG
     Route: 042
     Dates: start: 20210903, end: 20210903
  7. TRASTUZUMAB DERUXTECAN [Suspect]
     Active Substance: TRASTUZUMAB DERUXTECAN
     Dosage: 220 MG
     Route: 042
     Dates: start: 20210924, end: 20210924
  8. TRASTUZUMAB DERUXTECAN [Suspect]
     Active Substance: TRASTUZUMAB DERUXTECAN
     Dosage: 220 MG
     Route: 042
     Dates: start: 20211015, end: 20211015
  9. TRASTUZUMAB DERUXTECAN [Suspect]
     Active Substance: TRASTUZUMAB DERUXTECAN
     Dosage: 220 MG
     Route: 042
     Dates: start: 20211104, end: 20211104
  10. TRASTUZUMAB DERUXTECAN [Suspect]
     Active Substance: TRASTUZUMAB DERUXTECAN
     Dosage: 220 MG
     Route: 042
     Dates: start: 20211125, end: 20211125
  11. TRASTUZUMAB DERUXTECAN [Suspect]
     Active Substance: TRASTUZUMAB DERUXTECAN
     Dosage: 220 MG
     Route: 042
     Dates: start: 20211217, end: 20211217
  12. TRASTUZUMAB DERUXTECAN [Suspect]
     Active Substance: TRASTUZUMAB DERUXTECAN
     Dosage: 220 MG
     Route: 042
     Dates: start: 20220112, end: 20220112
  13. ANASTROZOLE [Suspect]
     Active Substance: ANASTROZOLE
     Indication: Breast cancer metastatic
     Dosage: 1 MG, QD
     Route: 048
     Dates: start: 20210514, end: 20220112
  14. METHYLCOBALAMIN [Concomitant]
     Active Substance: METHYLCOBALAMIN
     Indication: Neuralgia
     Route: 048
     Dates: start: 20200730
  15. METHYLCOBALAMIN [Concomitant]
     Active Substance: METHYLCOBALAMIN
     Indication: Neuritis
  16. SOLAXIN [CHLORZOXAZONE] [Concomitant]
     Indication: Femur fracture
     Dosage: 200 MG TWO TIMES A DAY AND EVERY NIGHT
     Route: 048
     Dates: start: 20210605
  17. SILIRIN [Concomitant]
     Indication: Hepatic function abnormal
     Route: 048
     Dates: start: 20211217
  18. DIMETHICONE [Concomitant]
     Active Substance: DIMETHICONE
     Indication: Abdominal distension
     Dosage: 50 MG
     Route: 048
     Dates: start: 20210722

REACTIONS (1)
  - Drug-induced liver injury [Not Recovered/Not Resolved]

NARRATIVE: CASE EVENT DATE: 20220208
